FAERS Safety Report 7909534-6 (Version None)
Quarter: 2011Q4

REPORT INFORMATION
  Report Type: 
  Country: None (occurrence: None)
  Receive Date: 20111111
  Receipt Date: 20111103
  Transmission Date: 20120403
  Serious: Yes (Other)
  Sender: FDA-Public Use
  Company Number: US-BAYER-201035562NA

PATIENT
  Age: 25 Year
  Sex: Female
  Weight: 81.633 kg

DRUGS (20)
  1. VITAMIN D [Concomitant]
  2. HYDROXYZINE [Concomitant]
     Dosage: 50 MG, UNK
  3. MAXALT [Concomitant]
  4. HYDROCODONE BITARTRATE [Concomitant]
  5. MACROBID [Concomitant]
  6. MICRONOR [Concomitant]
     Dosage: UNK
     Dates: start: 20060706, end: 20070427
  7. AZITHROMYCIN [Concomitant]
     Dosage: 250 MG, UNK
  8. YASMIN [Suspect]
     Indication: CONTRACEPTION
     Route: 048
  9. ATIVAN [Concomitant]
  10. CYCLOBENZAPRINE [Concomitant]
     Dosage: 10 MG, UNK
  11. PROPAFENONE HCL [Concomitant]
     Dosage: 300 MG, UNK
  12. YAZ [Suspect]
     Indication: CONTRACEPTION
     Route: 048
  13. YAZ [Suspect]
     Indication: PROPHYLAXIS
  14. YASMIN [Suspect]
     Indication: PROPHYLAXIS
  15. ZOLOFT [Concomitant]
     Indication: TACHYCARDIA
  16. REGLAN [Concomitant]
  17. PROPOXYPHENE NAPSYLATE W/ ACETAMINOPHEN [Concomitant]
  18. NAPROXEN [Concomitant]
  19. TOPROL-XL [Concomitant]
     Indication: TACHYCARDIA
  20. LORAZEPAM [Concomitant]
     Indication: TACHYCARDIA

REACTIONS (2)
  - CHOLELITHIASIS [None]
  - NEPHROLITHIASIS [None]
